FAERS Safety Report 19868925 (Version 2)
Quarter: 2021Q4

REPORT INFORMATION
  Report Type: Spontaneous
  Country: US (occurrence: US)
  Receive Date: 20210922
  Receipt Date: 20211011
  Transmission Date: 20220303
  Serious: Yes (Hospitalization, Other)
  Sender: FDA-Public Use
  Company Number: US-PFIZER INC-202101192659

PATIENT
  Age: 43 Year
  Sex: Female
  Weight: 56.69 kg

DRUGS (1)
  1. INLYTA [Suspect]
     Active Substance: AXITINIB
     Indication: Renal cancer
     Dosage: 5 MG, 2X/DAY
     Route: 048
     Dates: start: 20210716

REACTIONS (9)
  - Coma [Unknown]
  - Blood glucose decreased [Unknown]
  - Hypothyroidism [Unknown]
  - Cholelithiasis [Recovered/Resolved]
  - Heavy menstrual bleeding [Unknown]
  - Blood pressure increased [Unknown]
  - Vomiting [Unknown]
  - Dyspnoea [Unknown]
  - Fatigue [Unknown]

NARRATIVE: CASE EVENT DATE: 20210801
